FAERS Safety Report 7095877-8 (Version None)
Quarter: 2010Q4

REPORT INFORMATION
  Report Type: 
  Country: None (occurrence: None)
  Receive Date: 20101111
  Receipt Date: 20101102
  Transmission Date: 20110411
  Serious: Yes (Other)
  Sender: FDA-Public Use
  Company Number: GB-ASTRAZENECA-2010SE52034

PATIENT
  Age: 16 Year
  Sex: Male
  Weight: 50 kg

DRUGS (7)
  1. MEROPENEM [Suspect]
     Indication: ENDOCARDITIS
     Route: 042
     Dates: start: 20100916, end: 20100917
  2. OMEPRAZOLE [Concomitant]
  3. PARACETAMOL [Concomitant]
  4. CEFTRIAXONE [Concomitant]
     Indication: MENINGITIS
     Dates: start: 20100831, end: 20100913
  5. GENTAMICIN [Concomitant]
     Dates: start: 20100904
  6. TEICOPLANIN [Concomitant]
     Dates: start: 20100916
  7. VANCOMYCIN [Concomitant]
     Dates: start: 20100905, end: 20100913

REACTIONS (3)
  - DRUG HYPERSENSITIVITY [None]
  - DYSPNOEA [None]
  - RASH [None]
